FAERS Safety Report 9961620 (Version 2)
Quarter: 2014Q2

REPORT INFORMATION
  Report Type: Spontaneous
  Country: PT (occurrence: PT)
  Receive Date: 20140305
  Receipt Date: 20140527
  Transmission Date: 20141212
  Serious: Yes (Other)
  Sender: FDA-Public Use
  Company Number: PT-GALDERMA-PT14000743

PATIENT
  Age: 39 Year
  Sex: Female
  Weight: 75 kg

DRUGS (2)
  1. METRODERM [Suspect]
     Indication: ROSACEA
     Route: 061
     Dates: start: 20140207, end: 20140211
  2. MINOTREX [Concomitant]
     Indication: ROSACEA
     Dosage: DOENTE MANT?M A MEDICA??O.
     Route: 048
     Dates: start: 20140205

REACTIONS (4)
  - Condition aggravated [Recovered/Resolved]
  - Rosacea [Recovered/Resolved]
  - Erythema [Recovered/Resolved]
  - Feeling hot [Recovered/Resolved]
